FAERS Safety Report 23515326 (Version 2)
Quarter: 2024Q1

REPORT INFORMATION
  Report Type: Report from Study
  Country: AU (occurrence: AU)
  Receive Date: 20240213
  Receipt Date: 20240321
  Transmission Date: 20240409
  Serious: Yes (Death, Hospitalization, Other)
  Sender: FDA-Public Use
  Company Number: AU-JNJFOC-20240167920

PATIENT
  Age: 66 Year
  Sex: Male
  Weight: 60 kg

DRUGS (4)
  1. TECVAYLI [Suspect]
     Active Substance: TECLISTAMAB-CQYV
     Indication: Plasma cell myeloma
     Dosage: 1ST STEP-UP DOSING.
     Route: 058
     Dates: start: 20240110
  2. TECVAYLI [Suspect]
     Active Substance: TECLISTAMAB-CQYV
     Dosage: 2ND STEP-UP DOSING.
     Route: 058
     Dates: start: 20240115
  3. TECVAYLI [Suspect]
     Active Substance: TECLISTAMAB-CQYV
     Dosage: FULL DOSE
     Route: 058
     Dates: start: 20240119, end: 20240119
  4. ALLOPURINOL [Concomitant]
     Active Substance: ALLOPURINOL
     Indication: Prophylaxis
     Route: 065
     Dates: start: 20240110

REACTIONS (7)
  - Bacterial sepsis [Fatal]
  - Plasma cell myeloma [Fatal]
  - Tumour lysis syndrome [Unknown]
  - Emphysema [Unknown]
  - Hypervolaemia [Unknown]
  - Immune effector cell-associated neurotoxicity syndrome [Recovered/Resolved]
  - Cytokine release syndrome [Recovered/Resolved]

NARRATIVE: CASE EVENT DATE: 20240112
